FAERS Safety Report 5274216-9 (Version None)
Quarter: 2007Q1

REPORT INFORMATION
  Report Type: 
  Country: None (occurrence: None)
  Receive Date: 20070323
  Receipt Date: 20070316
  Transmission Date: 20070707
  Serious: Yes (Hospitalization)
  Sender: FDA-Public Use
  Company Number: US-BOEHRINGER INGELHEIM PHARMACEUTICALS, INC.-2007-BP-03644BP

PATIENT
  Sex: Male

DRUGS (2)
  1. FLOMAX [Suspect]
     Route: 048
     Dates: end: 20070316
  2. AVODART [Suspect]

REACTIONS (1)
  - ATRIAL FIBRILLATION [None]
